FAERS Safety Report 5430927-3 (Version None)
Quarter: 2007Q3

REPORT INFORMATION
  Report Type: 
  Country: None (occurrence: None)
  Receive Date: 20070828
  Receipt Date: 20070813
  Transmission Date: 20080115
  Serious: Yes (Hospitalization, Other)
  Sender: FDA-Public Use
  Company Number: 2006RR-03778

PATIENT
  Age: 76 Year
  Sex: Male

DRUGS (9)
  1. CLARITHROMYCINE RANBAXY 500 MG COMPRIME PELLICULE(CLARITHROMYCIN) UNKN [Suspect]
     Dosage: 1 G, QD,
  2. COLCHICUM JTL LIQ [Suspect]
     Indication: FAMILIAL MEDITERRANEAN FEVER
     Dosage: 1.5 MG, QD,; 0.5 MG, QD,; 1 MG, QD,
  3. AMOXICILLIN [Concomitant]
  4. OMEPRAZOLE [Concomitant]
  5. ACEBUTOLOL BIOGALENIQUE 200MG COMPRIME PELLICULE (ACEBUTOLOL) UNKNOWN [Concomitant]
  6. RAMIPRIL RANBAXY 1,25MG COMPRIME (RAMIPRIL) UNKNOWN [Concomitant]
  7. SPIRONOLACTONE RPG 50 MG COMPRIME PELLICULE (SPIRONOLACTONE) UNKNOWN [Concomitant]
  8. MOLSIDOMINE RPG 2MG COMPRIME SECABLE (MOLSIDOMINE) UNKNOWN [Concomitant]
  9. ASPIRIN [Concomitant]

REACTIONS (11)
  - ABDOMINAL PAIN [None]
  - ALOPECIA [None]
  - DEHYDRATION [None]
  - DIARRHOEA HAEMORRHAGIC [None]
  - DRUG INTERACTION [None]
  - DRUG TOXICITY [None]
  - LIPASE INCREASED [None]
  - METABOLIC ACIDOSIS [None]
  - PANCYTOPENIA [None]
  - PYREXIA [None]
  - VOMITING [None]
